FAERS Safety Report 25984330 (Version 1)
Quarter: 2025Q4

REPORT INFORMATION
  Report Type: Spontaneous
  Country: EU (occurrence: EU)
  Receive Date: 20251031
  Receipt Date: 20251031
  Transmission Date: 20260118
  Serious: Yes (Other)
  Sender: MERCK SHARP & DOHME LLC
  Company Number: None

PATIENT
  Age: 46 Year
  Sex: Male
  Weight: 106 kg

DRUGS (1)
  1. DELSTRIGO [Suspect]
     Active Substance: DORAVIRINE\LAMIVUDINE\TENOFOVIR DISOPROXIL FUMARATE
     Indication: HIV test positive
     Dosage: 1 COMPRESS/DAY
     Route: 048
     Dates: start: 20231010, end: 20251014

REACTIONS (1)
  - HIV viraemia [Unknown]

NARRATIVE: CASE EVENT DATE: 20241001
